FAERS Safety Report 6217573-9 (Version None)
Quarter: 2009Q2

REPORT INFORMATION
  Report Type: 
  Country: None (occurrence: None)
  Receive Date: 20090608
  Receipt Date: 20090303
  Transmission Date: 20091009
  Serious: No
  Sender: FDA-Public Use
  Company Number: A0771357A

PATIENT
  Age: 48 Year
  Sex: Female

DRUGS (2)
  1. BUPROPION HYDROCHLORIDE [Suspect]
     Indication: DEPRESSION
     Dosage: 300MG PER DAY
     Route: 048
     Dates: start: 20090221, end: 20090302
  2. NO CONCURRENT MEDICATION [Concomitant]

REACTIONS (2)
  - INSOMNIA [None]
  - TREMOR [None]
